FAERS Safety Report 5860929-4 (Version None)
Quarter: 2008Q3

REPORT INFORMATION
  Report Type: 
  Country: None (occurrence: None)
  Receive Date: 20080827
  Receipt Date: 20080111
  Transmission Date: 20090109
  Serious: No
  Sender: FDA-Public Use
  Company Number: US-ABBOTT-08P-163-0433333-00

PATIENT
  Sex: Female
  Weight: 64.468 kg

DRUGS (13)
  1. NIASPAN [Suspect]
     Indication: BLOOD TRIGLYCERIDES INCREASED
     Route: 048
     Dates: start: 20080107
  2. NIASPAN [Suspect]
     Route: 048
     Dates: start: 20071201, end: 20080107
  3. ATORVASTATIN CALCIUM [Concomitant]
     Indication: BLOOD CHOLESTEROL INCREASED
  4. CADUET [Concomitant]
     Indication: HYPERTENSION
  5. OXAPROZIN [Concomitant]
     Indication: ARTHRALGIA
  6. DARVACET [Concomitant]
     Indication: ARTHRALGIA
  7. FLEXERIL [Concomitant]
     Indication: ARTHRALGIA
  8. PROVELLA-14 [Concomitant]
     Indication: DRUG USE FOR UNKNOWN INDICATION
  9. ACTONAL [Concomitant]
     Indication: OSTEOARTHRITIS
  10. FEXOFENADINE [Concomitant]
     Indication: DRUG USE FOR UNKNOWN INDICATION
  11. FISH OIL [Concomitant]
     Indication: DRUG USE FOR UNKNOWN INDICATION
  12. MULTI-VITAMIN [Concomitant]
     Indication: DRUG USE FOR UNKNOWN INDICATION
  13. ACETYLSALICYLIC ACID SRT [Concomitant]
     Indication: PROPHYLAXIS

REACTIONS (1)
  - VASCULAR RUPTURE [None]
